FAERS Safety Report 9546815 (Version 1)
Quarter: 2013Q3

REPORT INFORMATION
  Report Type: Spontaneous
  Country: RU (occurrence: RU)
  Receive Date: 20130924
  Receipt Date: 20130924
  Transmission Date: 20140515
  Serious: Yes (Life-Threatening, Hospitalization, Other)
  Sender: FDA-Public Use
  Company Number: RU-ROCHE-1279589

PATIENT
  Age: 57 Year
  Sex: Male
  Weight: 78 kg

DRUGS (5)
  1. MABTHERA [Suspect]
     Indication: RHEUMATOID ARTHRITIS
     Route: 065
     Dates: end: 20120731
  2. MABTHERA [Suspect]
     Indication: RENAL FAILURE CHRONIC
  3. MABTHERA [Suspect]
     Indication: SECONDARY AMYLOIDOSIS
  4. METHOTREXATE [Concomitant]
  5. PREDNISONE [Concomitant]

REACTIONS (3)
  - Osteonecrosis [Recovered/Resolved]
  - Renal failure acute [Not Recovered/Not Resolved]
  - Azotaemia [Not Recovered/Not Resolved]
